FAERS Safety Report 18947155 (Version 2)
Quarter: 2022Q3

REPORT INFORMATION
  Report Type: Spontaneous
  Country: US (occurrence: US)
  Receive Date: 20210226
  Receipt Date: 20220726
  Transmission Date: 20221027
  Serious: Yes (Other)
  Sender: FDA-Public Use
  Company Number: US-MYLANLABS-2021M1009405

PATIENT
  Age: 74 Year
  Sex: Male
  Weight: 107 kg

DRUGS (7)
  1. MUSE [Suspect]
     Active Substance: ALPROSTADIL
     Indication: Erectile dysfunction
     Dosage: 1000 MICROGRAM, BID, (TWICE)
     Route: 066
  2. MUSE [Suspect]
     Active Substance: ALPROSTADIL
     Dosage: PRN, (AS NEEDED)
     Route: 065
     Dates: start: 20210820
  3. MUSE [Suspect]
     Active Substance: ALPROSTADIL
     Dosage: PRN, (AS NEEDED)
     Route: 065
     Dates: start: 20211110
  4. MUSE [Suspect]
     Active Substance: ALPROSTADIL
     Dosage: UNK UNK, PRN, (AS NEEDED)
     Route: 065
     Dates: start: 20220105
  5. MUSE [Suspect]
     Active Substance: ALPROSTADIL
     Dosage: UNK UNK, PRN, (AS NEEDED)
     Route: 065
     Dates: start: 20220203
  6. MUSE [Suspect]
     Active Substance: ALPROSTADIL
     Dosage: PRN, (AS NEEDED)
     Route: 065
     Dates: start: 20220506
  7. MUSE [Suspect]
     Active Substance: ALPROSTADIL
     Dosage: PRN, (AS NEEDED)
     Route: 065
     Dates: start: 20220704

REACTIONS (6)
  - Drug ineffective [Not Recovered/Not Resolved]
  - Penis disorder [Not Recovered/Not Resolved]
  - Genital pain [Not Recovered/Not Resolved]
  - Dysuria [Unknown]
  - Burning sensation [Unknown]
  - Product label issue [Unknown]

NARRATIVE: CASE EVENT DATE: 20220105
